FAERS Safety Report 6218915-0 (Version None)
Quarter: 2009Q2

REPORT INFORMATION
  Report Type: 
  Country: None (occurrence: None)
  Receive Date: 20090608
  Receipt Date: 20090526
  Transmission Date: 20091009
  Serious: Yes (Hospitalization)
  Sender: FDA-Public Use
  Company Number: GB-MYLANLABS-2009S1009330

PATIENT
  Age: 42 Year
  Sex: Male

DRUGS (3)
  1. ESTRADIOL TRANSDERMAL SYSTEM, USP [Suspect]
     Indication: TRANSGENDER HORMONAL THERAPY
     Route: 062
  2. ETHINYL ESTRADIOL TAB [Suspect]
     Indication: TRANSGENDER HORMONAL THERAPY
     Route: 048
  3. SPIRONOLACTONE [Suspect]
     Indication: TRANSGENDER HORMONAL THERAPY
     Route: 048

REACTIONS (1)
  - PULMONARY EMBOLISM [None]
